FAERS Safety Report 8353999 (Version 6)
Quarter: 2013Q1

REPORT INFORMATION
  Report Type: Report from Study
  Country: US (occurrence: US)
  Receive Date: 20120125
  Receipt Date: 20130314
  Transmission Date: 20140127
  Serious: Yes (Death, Hospitalization, Disabling)
  Sender: FDA-Public Use
  Company Number: US-ROCHE-1026459

PATIENT
  Age: 51 Year
  Sex: Male
  Weight: 69 kg

DRUGS (11)
  1. PEG-INTERFERON ALFA 2A [Suspect]
     Indication: CHRONIC HEPATITIS C
     Dosage: LAST DOSE PRIOR TO SAE: 14/DEC/2011
     Route: 058
     Dates: start: 20111130, end: 20111216
  2. RIBAVIRIN [Suspect]
     Indication: CHRONIC HEPATITIS C
     Dosage: LAST DOSE PRIOR TO SAE: 14/DEC/2011
     Route: 048
     Dates: start: 20111130, end: 20111216
  3. SPIRONOLACTONE [Concomitant]
     Indication: HEPATIC CIRRHOSIS
     Route: 048
  4. CALCIUM [Concomitant]
     Route: 048
  5. PROPRANOLOL [Concomitant]
     Indication: HYPERTENSION
     Route: 048
  6. LASIX [Concomitant]
     Indication: HYPERTENSION
     Route: 048
  7. LACTULOSE [Concomitant]
     Indication: HEPATIC CIRRHOSIS
     Route: 048
  8. ENALAPRIL [Concomitant]
     Indication: HYPERTENSION
     Route: 048
  9. LOPERAMIDE [Concomitant]
     Indication: DIARRHOEA
  10. AVIL [Concomitant]
     Indication: MYALGIA
  11. BI 201335 [Suspect]
     Indication: CHRONIC HEPATITIS C
     Route: 048
     Dates: start: 20111130, end: 20111216

REACTIONS (5)
  - Blood bilirubin increased [Fatal]
  - Thrombocytopenia [Fatal]
  - Chronic hepatic failure [Fatal]
  - Renal failure acute [Fatal]
  - Rash [Recovered/Resolved]
